FAERS Safety Report 21454517 (Version 2)
Quarter: 2022Q4

REPORT INFORMATION
  Report Type: Spontaneous
  Country: US (occurrence: US)
  Receive Date: 20221013
  Receipt Date: 20221109
  Transmission Date: 20230113
  Serious: No
  Sender: FDA-Public Use
  Company Number: US-BRISTOL-MYERS SQUIBB COMPANY-2022-119214

PATIENT
  Age: 50 Year
  Sex: Male

DRUGS (2)
  1. POMALYST [Suspect]
     Active Substance: POMALIDOMIDE
     Indication: Plasma cell myeloma
     Dosage: FREQUENCY : DAYS 1-14 Q 28 DAYS
     Route: 048
     Dates: start: 20220124
  2. POMALYST [Suspect]
     Active Substance: POMALIDOMIDE
     Dosage: 14 DAYS ON 14 DAYS OFF EVERY 28 DAYS
     Route: 048
     Dates: start: 20210127

REACTIONS (3)
  - Muscle spasms [Not Recovered/Not Resolved]
  - Intentional product use issue [Unknown]
  - Monoclonal immunoglobulin present [Not Recovered/Not Resolved]

NARRATIVE: CASE EVENT DATE: 20221017
